FAERS Safety Report 13669357 (Version 1)
Quarter: 2017Q2

REPORT INFORMATION
  Report Type: Spontaneous
  Country: GB (occurrence: GB)
  Receive Date: 20170620
  Receipt Date: 20170620
  Transmission Date: 20170830
  Serious: Yes (Hospitalization, Other)
  Sender: FDA-Public Use
  Company Number: PHFR2017GB004591

PATIENT
  Age: 69 Year
  Sex: Male

DRUGS (15)
  1. ASPIRIN. [Concomitant]
     Active Substance: ASPIRIN
     Indication: DYSPNOEA PAROXYSMAL NOCTURNAL
  2. EPLERENONE. [Concomitant]
     Active Substance: EPLERENONE
     Dosage: 25 MG, UNK
     Route: 065
     Dates: start: 201610
  3. FUROSEMIDE. [Concomitant]
     Active Substance: FUROSEMIDE
     Dosage: 80 MG, BID
     Route: 065
     Dates: start: 201607
  4. ALLOPURINOL. [Concomitant]
     Active Substance: ALLOPURINOL
     Indication: BLOOD PRESSURE DECREASED
     Dosage: 100 MG, QD
     Route: 065
  5. FUROSEMIDE. [Concomitant]
     Active Substance: FUROSEMIDE
     Dosage: 1 DF,(8040 MG) UNK
     Dates: start: 201609
  6. ENTRESTO [Suspect]
     Active Substance: SACUBITRIL\VALSARTAN
     Dosage: 200 MG,(97/103 MG) BID
     Route: 065
     Dates: start: 201701
  7. LOSARTAN. [Concomitant]
     Active Substance: LOSARTAN
     Indication: OEDEMA PERIPHERAL
     Dosage: 50 MG, QHS
     Route: 065
  8. EPLERENONE. [Concomitant]
     Active Substance: EPLERENONE
     Indication: PRODUCT USED FOR UNKNOWN INDICATION
     Dosage: 50 MG, QD
     Route: 065
  9. FUROSEMIDE. [Concomitant]
     Active Substance: FUROSEMIDE
     Indication: OBESITY
     Dosage: 1 DF,(80/40 MG) QD
     Route: 065
  10. FUROSEMIDE. [Concomitant]
     Active Substance: FUROSEMIDE
     Dosage: 80 MG, QD
     Route: 065
  11. ENTRESTO [Suspect]
     Active Substance: SACUBITRIL\VALSARTAN
     Indication: PRODUCT USED FOR UNKNOWN INDICATION
     Dosage: 50 MG,(24/26 MG) BID
     Route: 065
     Dates: start: 201607
  12. ENTRESTO [Suspect]
     Active Substance: SACUBITRIL\VALSARTAN
     Dosage: 100 MG,(49/51 MG) BID
     Route: 065
     Dates: start: 201611
  13. APIXABAN [Concomitant]
     Active Substance: APIXABAN
     Indication: CARDIAC FAILURE CHRONIC
     Dosage: 5 MG, BID
     Route: 065
  14. BISOPROLOL [Concomitant]
     Active Substance: BISOPROLOL
     Indication: DYSPNOEA EXERTIONAL
     Dosage: 1 DF, QD
     Route: 065
  15. ASPIRIN. [Concomitant]
     Active Substance: ASPIRIN
     Indication: ORTHOPNOEA
     Dosage: 1 DF, QD
     Route: 065

REACTIONS (6)
  - Gout [Unknown]
  - Rectal haemorrhage [Unknown]
  - Glomerular filtration rate decreased [Unknown]
  - Pulmonary oedema [Recovered/Resolved]
  - Blood pressure decreased [Unknown]
  - Weight decreased [Unknown]

NARRATIVE: CASE EVENT DATE: 201607
